FAERS Safety Report 15843603 (Version 1)
Quarter: 2019Q1

REPORT INFORMATION
  Report Type: Spontaneous
  Country: JP (occurrence: JP)
  Receive Date: 20190118
  Receipt Date: 20190118
  Transmission Date: 20190417
  Serious: Yes (Other)
  Sender: FDA-Public Use
  Company Number: JP-NAPPMUNDI-GBR-2018-0063121

PATIENT
  Sex: Male

DRUGS (5)
  1. OXINORM (OXYCODONE HYDROCHLORIDE) [Suspect]
     Active Substance: OXYCODONE HYDROCHLORIDE
     Indication: CANCER PAIN
     Dosage: UNK
     Route: 065
  2. OXIFAST [Suspect]
     Active Substance: OXYCODONE
     Dosage: 10 MG, DAILY
     Route: 041
     Dates: end: 20181219
  3. OXIFAST [Suspect]
     Active Substance: OXYCODONE
     Indication: CANCER PAIN
     Dosage: 50 MG, DAILY
     Route: 041
  4. OXIFAST [Suspect]
     Active Substance: OXYCODONE
     Dosage: 100 MG, DAILY
     Route: 041
     Dates: start: 20181219
  5. NON-PMN OXYCODONE [Concomitant]
     Active Substance: OXYCODONE
     Indication: CANCER PAIN
     Dosage: 120 MG, DAILY
     Route: 065
     Dates: end: 20181219

REACTIONS (2)
  - Somnolence [Recovered/Resolved]
  - Delirium [Recovered/Resolved]

NARRATIVE: CASE EVENT DATE: 201812
